FAERS Safety Report 22384437 (Version 1)
Quarter: 2023Q2

REPORT INFORMATION
  Report Type: Spontaneous
  Country: AT (occurrence: AT)
  Receive Date: 20230530
  Receipt Date: 20230530
  Transmission Date: 20230722
  Serious: Yes (Other)
  Sender: FDA-Public Use
  Company Number: AT-Accord-356754

PATIENT
  Age: 80 Year
  Sex: Male

DRUGS (3)
  1. LENALIDOMIDE [Suspect]
     Active Substance: LENALIDOMIDE
     Indication: Diffuse large B-cell lymphoma refractory
     Dosage: 10 MILLIGRAM (3 CYCLES (TOTAL 12 CYCLES))
     Route: 065
  2. LENALIDOMIDE [Suspect]
     Active Substance: LENALIDOMIDE
     Dosage: 15MG,9CYCLE(TOTAL12CYCLE)1.5YR AFTER INITIAL
     Route: 065
  3. TAFASITAMAB [Suspect]
     Active Substance: TAFASITAMAB
     Indication: Diffuse large B-cell lymphoma refractory
     Dosage: 28-DAY CYCLE, 1.5 YR AFTER THE INITIAL DIAGNOSIS
     Route: 065

REACTIONS (7)
  - Malignant neoplasm progression [Unknown]
  - Diffuse large B-cell lymphoma refractory [Unknown]
  - Thrombocytopenia [Unknown]
  - Neutropenia [Unknown]
  - Respiratory tract infection [Unknown]
  - Therapy partial responder [Unknown]
  - Product use in unapproved indication [Unknown]
